FAERS Safety Report 18170397 (Version 5)
Quarter: 2021Q3

REPORT INFORMATION
  Report Type: Spontaneous
  Country: GB (occurrence: GB)
  Receive Date: 20200819
  Receipt Date: 20210922
  Transmission Date: 20211014
  Serious: Yes (Life-Threatening, Other)
  Sender: FDA-Public Use
  Company Number: GB-MYLANLABS-2020M1071264

PATIENT
  Age: 48 Year
  Sex: Female

DRUGS (5)
  1. ESTRADIOL. [Suspect]
     Active Substance: ESTRADIOL
     Indication: MENOPAUSE
     Dosage: 50 MCG PER 24 HOURS (2 PATCHES TOGETHER)
     Route: 062
  2. AMITRIPTYLINE                      /00002202/ [Concomitant]
     Active Substance: AMITRIPTYLINE
     Indication: MIGRAINE
     Dosage: UNK
     Route: 065
  3. SUMATRIPTAN. [Concomitant]
     Active Substance: SUMATRIPTAN
     Indication: MIGRAINE
     Dosage: UNK
     Route: 065
  4. ESTRADIOL/NORETHISTERONE [Suspect]
     Active Substance: ESTRADIOL\NORETHINDRONE
     Indication: MENOPAUSE
     Dosage: UNK
     Route: 065
  5. MIRENA [Suspect]
     Active Substance: LEVONORGESTREL
     Indication: MENOPAUSE
     Dosage: UNK
     Route: 065

REACTIONS (9)
  - Wrong technique in product usage process [Unknown]
  - Product quality issue [Unknown]
  - Depression suicidal [Unknown]
  - Suicidal ideation [Unknown]
  - Off label use [Unknown]
  - Myalgia [Unknown]
  - Arthralgia [Unknown]
  - Medication error [Unknown]
  - Product supply issue [Unknown]

NARRATIVE: CASE EVENT DATE: 20200512
